FAERS Safety Report 17751272 (Version 1)
Quarter: 2020Q2

REPORT INFORMATION
  Report Type: Spontaneous
  Country: BE (occurrence: BE)
  Receive Date: 20200506
  Receipt Date: 20200506
  Transmission Date: 20200714
  Serious: Yes (Hospitalization, Other)
  Sender: FDA-Public Use
  Company Number: BE-SA-2020SA112171

PATIENT
  Age: 40 Year
  Sex: Male

DRUGS (5)
  1. PANITUMUMAB [Concomitant]
     Active Substance: PANITUMUMAB
     Indication: CHEMOTHERAPY
     Dosage: UNK
  2. IRINOTECAN [Concomitant]
     Active Substance: IRINOTECAN
     Indication: CHEMOTHERAPY
     Dosage: UNK
  3. FLUOROURACIL. [Concomitant]
     Active Substance: FLUOROURACIL
     Indication: COLON CANCER
     Dosage: UNK
  4. OXALIPLATIN. [Suspect]
     Active Substance: OXALIPLATIN
     Indication: COLON CANCER
     Dosage: UNK
  5. FOLINIC ACID [Concomitant]
     Active Substance: LEUCOVORIN
     Indication: COLON CANCER
     Dosage: UNK

REACTIONS (11)
  - Pyrexia [Recovering/Resolving]
  - Neuralgia [Recovering/Resolving]
  - Paraparesis [Recovering/Resolving]
  - Blindness [Recovered/Resolved]
  - Neurosarcoidosis [Recovering/Resolving]
  - Headache [Recovering/Resolving]
  - Granuloma [Recovering/Resolving]
  - Urinary retention [Recovering/Resolving]
  - Vomiting [Recovering/Resolving]
  - Photophobia [Recovering/Resolving]
  - Nausea [Recovering/Resolving]
